FAERS Safety Report 9748601 (Version 1)
Quarter: 2013Q4

REPORT INFORMATION
  Report Type: Spontaneous
  Country: NL (occurrence: None)
  Receive Date: 20131209
  Receipt Date: 20131209
  Transmission Date: 20140711
  Serious: Yes (Other)
  Sender: FDA-Public Use
  Company Number: 2013NL0452

PATIENT
  Sex: Male

DRUGS (1)
  1. NITISINONE (NITISINONE) [Suspect]
     Indication: TYROSINAEMIA

REACTIONS (4)
  - Mental impairment [None]
  - Keratitis [None]
  - Amino acid level increased [None]
  - Cognitive disorder [None]
